FAERS Safety Report 4679990-8 (Version None)
Quarter: 2005Q2

REPORT INFORMATION
  Report Type: 
  Country: None (occurrence: None)
  Receive Date: 20050531
  Receipt Date: 20050518
  Transmission Date: 20051028
  Serious: Yes (Hospitalization, Other)
  Sender: FDA-Public Use
  Company Number: 2005078133

PATIENT
  Age: 58 Year
  Sex: Male

DRUGS (2)
  1. HYDROCORTISONE SODIUM SUCCINATE [Suspect]
     Indication: ANAPHYLACTIC SHOCK
     Dosage: (100 MG,), INTRAVENOUS
     Route: 042
  2. HYDROCORTISONE SODIUM SUCCINATE [Suspect]
     Indication: EXANTHEM
     Dosage: (100 MG,), INTRAVENOUS
     Route: 042

REACTIONS (1)
  - ANAPHYLACTIC SHOCK [None]
